FAERS Safety Report 12694271 (Version 1)
Quarter: 2016Q3

REPORT INFORMATION
  Report Type: Spontaneous
  Country: US (occurrence: US)
  Receive Date: 20160829
  Receipt Date: 20160829
  Transmission Date: 20161109
  Serious: Yes (Death)
  Sender: FDA-Public Use
  Company Number: US-PFIZER INC-2016398402

PATIENT
  Weight: 3.04 kg

DRUGS (1)
  1. INDOMETHACIN. [Suspect]
     Active Substance: INDOMETHACIN
     Dosage: 25 MG, 1X/DAY
     Route: 064

REACTIONS (2)
  - Pulmonary vascular disorder [Fatal]
  - Maternal exposure during pregnancy [Fatal]
